FAERS Safety Report 5479873-X (Version None)
Quarter: 2007Q4

REPORT INFORMATION
  Report Type: 
  Country: None (occurrence: None)
  Receive Date: 20071008
  Receipt Date: 20071001
  Transmission Date: 20080405
  Serious: Yes (Death)
  Sender: FDA-Public Use
  Company Number: FR-ROXANE LABORATORIES, INC-2007-BP-22224RO

PATIENT
  Age: 24 Year
  Sex: Male

DRUGS (10)
  1. ZIDOVUDINE [Suspect]
     Indication: HIV INFECTION
     Dates: start: 19940101
  2. CYCLOPHOSPHAMIDE [Suspect]
     Indication: DIFFUSE LARGE B-CELL LYMPHOMA
     Dates: start: 20040601, end: 20041201
  3. PREDNISONE [Suspect]
     Indication: DIFFUSE LARGE B-CELL LYMPHOMA
     Dates: start: 20040601, end: 20041201
  4. DIDANOSINE [Suspect]
     Indication: HIV INFECTION
     Dates: start: 19950101
  5. LAMIVUDINE [Suspect]
     Indication: HIV INFECTION
     Dates: start: 19970101
  6. LOPINAVIR AND RITONAVIR [Suspect]
     Indication: HIV INFECTION
     Dates: start: 20030101
  7. EFAVIRENZ [Suspect]
     Indication: HIV INFECTION
     Dates: start: 20030101
  8. DOXORUBICIN HCL [Suspect]
     Indication: DIFFUSE LARGE B-CELL LYMPHOMA
     Dates: start: 20040601, end: 20041201
  9. VINCRISTINE [Suspect]
     Indication: DIFFUSE LARGE B-CELL LYMPHOMA
     Dates: start: 20040601, end: 20041201
  10. ADEFOVIR DIPIVOXIL KIT [Suspect]
     Indication: HIV INFECTION

REACTIONS (4)
  - ALANINE AMINOTRANSFERASE INCREASED [None]
  - B-CELL LYMPHOMA RECURRENT [None]
  - DIFFUSE LARGE B-CELL LYMPHOMA [None]
  - HEPATITIS B [None]
